FAERS Safety Report 20674802 (Version 6)
Quarter: 2022Q3

REPORT INFORMATION
  Report Type: Report from Study
  Country: US (occurrence: US)
  Receive Date: 20220405
  Receipt Date: 20220728
  Transmission Date: 20221027
  Serious: No
  Sender: FDA-Public Use
  Company Number: US-NOVARTISTESTPH-NVSC2022US076102

PATIENT
  Sex: Female

DRUGS (2)
  1. ENTRESTO [Suspect]
     Active Substance: SACUBITRIL\VALSARTAN
     Indication: Product used for unknown indication
     Dosage: 1 DOSAGE FORM, BID (49/51 MG, 48.6 MG SACUBITRIL AND 51.4 MG VALSARTAN)
     Route: 065
  2. ENTRESTO [Suspect]
     Active Substance: SACUBITRIL\VALSARTAN
     Dosage: 49 MG, BID (49/51 MG, 48.6 MG SACUBITRIL AND 51.4 MG VALSARTAN)
     Route: 065

REACTIONS (8)
  - Nocturia [Unknown]
  - Poor quality sleep [Unknown]
  - COVID-19 [Unknown]
  - Headache [Unknown]
  - Diarrhoea [Unknown]
  - Nasal congestion [Unknown]
  - Cough [Unknown]
  - Product dose omission issue [Unknown]
